FAERS Safety Report 19621584 (Version 3)
Quarter: 2021Q3

REPORT INFORMATION
  Report Type: Report from Study
  Country: MX (occurrence: MX)
  Receive Date: 20210728
  Receipt Date: 20210901
  Transmission Date: 20211014
  Serious: Yes (Other)
  Sender: FDA-Public Use
  Company Number: NVSC2021MX166901

PATIENT
  Age: 69 Year
  Sex: Male
  Weight: 44 kg

DRUGS (5)
  1. EUTEBROL [Concomitant]
     Indication: PRODUCT USED FOR UNKNOWN INDICATION
     Dosage: 1 DF, QD
     Route: 048
     Dates: start: 20210628
  2. NOCTE [Concomitant]
     Active Substance: ZOLPIDEM TARTRATE
     Indication: SLEEP DISORDER
     Dosage: 1 DF, QD
     Route: 048
     Dates: start: 20210628
  3. EXELON [Suspect]
     Active Substance: RIVASTIGMINE TARTRATE
     Indication: SENILE DEMENTIA
     Dosage: 4.6 MG, QD PATCH 5 (CM2), 1 DF QD
     Route: 062
     Dates: start: 20210605
  4. EXELON [Suspect]
     Active Substance: RIVASTIGMINE TARTRATE
     Indication: DEMENTIA
     Dosage: 4.6 MG, QD PATCH 5 (CM2), 1 DF QD
     Route: 062
     Dates: start: 20210628, end: 20210802
  5. EXELON [Suspect]
     Active Substance: RIVASTIGMINE TARTRATE
     Dosage: 9.5 MG, QD PATCH 10 (CM2)
     Route: 062
     Dates: start: 20210802

REACTIONS (17)
  - Rectal haemorrhage [Unknown]
  - Abdominal discomfort [Unknown]
  - Underweight [Unknown]
  - Penile pain [Unknown]
  - Memory impairment [Unknown]
  - Constipation [Not Recovered/Not Resolved]
  - Calcium deficiency [Not Recovered/Not Resolved]
  - Pain [Unknown]
  - Product use in unapproved indication [Unknown]
  - Prostatitis [Not Recovered/Not Resolved]
  - Pollakiuria [Unknown]
  - Penile burning sensation [Unknown]
  - Feeling abnormal [Recovering/Resolving]
  - Fear [Recovering/Resolving]
  - Gait disturbance [Recovering/Resolving]
  - Malnutrition [Not Recovered/Not Resolved]
  - Fall [Unknown]

NARRATIVE: CASE EVENT DATE: 20210614
